FAERS Safety Report 4835589-1 (Version None)
Quarter: 2005Q4

REPORT INFORMATION
  Report Type: 
  Country: None (occurrence: None)
  Receive Date: 20051121
  Receipt Date: 20051110
  Transmission Date: 20060501
  Serious: Yes (Hospitalization)
  Sender: FDA-Public Use
  Company Number: COV2-2005-00501

PATIENT
  Age: 53 Year
  Sex: Female
  Weight: 54.7 kg

DRUGS (9)
  1. FOSRENOL [Suspect]
     Indication: HYPERPHOSPHATAEMIA
     Dosage: 500 MG, 3X/DAY: TID, ORAL
     Route: 048
     Dates: start: 20050527, end: 20050912
  2. ZOCOR [Concomitant]
  3. SENSIPAR (CINACALCET HYDROCHLORIDE) [Concomitant]
  4. KLONOPIN [Concomitant]
  5. PROTONIX [Concomitant]
  6. RESTORIL [Concomitant]
  7. NEPHRO-VITE (VITAMINS NOS) [Concomitant]
  8. FOLIC ACID [Concomitant]
  9. CLINDAMYCIN [Concomitant]

REACTIONS (8)
  - AGGRESSION [None]
  - AGITATION [None]
  - BLOOD POTASSIUM INCREASED [None]
  - CHOLECYSTITIS CHRONIC [None]
  - DRUG WITHDRAWAL SYNDROME [None]
  - HEPATITIS [None]
  - HEPATOMEGALY [None]
  - PLATELET COUNT DECREASED [None]
